FAERS Safety Report 6128386-0 (Version None)
Quarter: 2009Q1

REPORT INFORMATION
  Report Type: 
  Country: None (occurrence: None)
  Receive Date: 20090323
  Receipt Date: 20090316
  Transmission Date: 20090719
  Serious: Yes (Hospitalization)
  Sender: FDA-Public Use
  Company Number: JP-ASTRAZENECA-2009SE01200

PATIENT
  Sex: Female
  Weight: 38 kg

DRUGS (5)
  1. BLOPRESS TABLETS 8 [Suspect]
     Indication: HYPERTENSION
     Route: 048
     Dates: start: 20050124, end: 20090211
  2. EUGLUCON [Concomitant]
     Indication: DIABETES MELLITUS
     Route: 048
     Dates: start: 19910827, end: 20090211
  3. METFORMIN HCL [Concomitant]
     Indication: DIABETES MELLITUS
     Route: 048
     Dates: start: 20030122, end: 20090211
  4. CONIEL [Concomitant]
     Indication: HYPERTENSION
     Route: 048
     Dates: start: 20050224, end: 20090211
  5. GLUCOBAY [Concomitant]
     Indication: DIABETES MELLITUS
     Route: 048
     Dates: start: 20030312, end: 20090211

REACTIONS (1)
  - LIVER DISORDER [None]
